FAERS Safety Report 7084309-1 (Version None)
Quarter: 2010Q4

REPORT INFORMATION
  Report Type: 
  Country: None (occurrence: None)
  Receive Date: 20101104
  Receipt Date: 20101101
  Transmission Date: 20110411
  Serious: Yes (Other)
  Sender: FDA-Public Use
  Company Number: SE-PFIZER INC-2010122775

PATIENT
  Sex: Male
  Weight: 73 kg

DRUGS (15)
  1. CHAMPIX [Suspect]
     Indication: SMOKING CESSATION THERAPY
     Dosage: 0.5 MG, 2X/DAY
     Route: 048
     Dates: start: 20100426, end: 20100401
  2. CHAMPIX [Suspect]
     Dosage: 1 MG, 2X/DAY
     Route: 048
     Dates: start: 20100401, end: 20100430
  3. CHAMPIX [Suspect]
     Dosage: UNK
     Route: 048
     Dates: start: 20100824, end: 20100801
  4. CHAMPIX [Suspect]
     Dosage: 1 MG, 2X/DAY
     Route: 048
     Dates: start: 20100801, end: 20100828
  5. PREDNISOLONE ^PHARMACIA-UPJOHN^ [Concomitant]
     Dosage: 5 MG, 1X/DAY
  6. ATROVENT [Concomitant]
     Indication: DYSPNOEA
     Dosage: 20 UG, AS NEEDED
  7. HERMOLEPSIN - SLOW RELEASE [Concomitant]
     Dosage: 200 MG, 2X/DAY
  8. ASPIRIN [Concomitant]
     Indication: PROPHYLAXIS
     Dosage: 75 MG, 1X/DAY
  9. SELOKEEN ZOC [Concomitant]
     Indication: BLOOD PRESSURE
     Dosage: 50 MG, 1X/DAY
  10. SIMVASTATIN [Concomitant]
     Indication: BLOOD CHOLESTEROL
     Dosage: 40 MG, 1X/DAY
  11. NITROMEX [Concomitant]
     Indication: ANGINA PECTORIS
     Dosage: 0.5 MG, AS NEEDED
  12. AMLODIPINE [Concomitant]
     Indication: BLOOD PRESSURE
     Dosage: 5 MG, 1X/DAY
  13. ATACAND [Concomitant]
     Indication: BLOOD PRESSURE
     Dosage: 8 MG, 2X/DAY
  14. BRICANYL [Concomitant]
     Dosage: 0.5 MG, AS NEEDED
  15. SYMBICORT [Concomitant]
     Dosage: 2X/DAY

REACTIONS (2)
  - DIPLOPIA [None]
  - FEELING ABNORMAL [None]
